FAERS Safety Report 11779656 (Version 1)
Quarter: 2015Q4

REPORT INFORMATION
  Report Type: Report from Study
  Country: US (occurrence: US)
  Receive Date: 20151125
  Receipt Date: 20151125
  Transmission Date: 20160304
  Serious: Yes (Other)
  Sender: FDA-Public Use
  Company Number: US-BIOGENIDEC-2015BI150179

PATIENT
  Age: 53 Year
  Sex: Female

DRUGS (1)
  1. TYSABRI [Suspect]
     Active Substance: NATALIZUMAB
     Indication: MULTIPLE SCLEROSIS
     Route: 042
     Dates: start: 20091102, end: 20150914

REACTIONS (3)
  - Lung adenocarcinoma metastatic [Not Recovered/Not Resolved]
  - Fall [Recovered/Resolved]
  - Spinal column injury [Not Recovered/Not Resolved]

NARRATIVE: CASE EVENT DATE: 20151022
